FAERS Safety Report 5341624-7 (Version None)
Quarter: 2007Q2

REPORT INFORMATION
  Report Type: 
  Country: None (occurrence: None)
  Receive Date: 20070530
  Receipt Date: 20070504
  Transmission Date: 20071010
  Serious: Yes (Life-Threatening)
  Sender: FDA-Public Use
  Company Number: 6033149

PATIENT
  Age: 69 Year
  Sex: Male

DRUGS (4)
  1. METFORMIN HCL [Suspect]
     Indication: DRUG USE FOR UNKNOWN INDICATION
     Dosage: 3 GM (3 GM, 1 D) ORAL
     Route: 048
     Dates: end: 20060723
  2. RAMIPRIL [Suspect]
     Indication: DRUG USE FOR UNKNOWN INDICATION
     Dosage: 10 MG (10 MG, 1 D) ORAL
     Route: 048
     Dates: end: 20060723
  3. METOPROLOL TARTRATE (100 MG, TABLET) (METOPROLOL TARTRATE) [Concomitant]
  4. AMLODIPINE (10 MG, TABLET) (AMLODIPINE) [Concomitant]

REACTIONS (5)
  - BLOOD POTASSIUM INCREASED [None]
  - HAEMODIALYSIS [None]
  - LACTIC ACIDOSIS [None]
  - ORAL INTAKE REDUCED [None]
  - RENAL FAILURE ACUTE [None]
